FAERS Safety Report 7322856-5 (Version None)
Quarter: 2011Q1

REPORT INFORMATION
  Report Type: 
  Country: None (occurrence: None)
  Receive Date: 20110214
  Receipt Date: 20110126
  Transmission Date: 20110831
  Serious: Yes (Hospitalization)
  Sender: FDA-Public Use
  Company Number: CV20100483

PATIENT
  Age: 79 Year
  Sex: Male

DRUGS (10)
  1. VOLUVEN [Suspect]
     Indication: HYPOVOLAEMIA
     Dosage: (3000 ML) (90 ML (INTRA-OPERATIVELY))
     Route: 041
     Dates: start: 20100812, end: 20100812
  2. HEPARIN [Concomitant]
  3. OMEPRAZOLE [Concomitant]
  4. BLOOD PRODUCTS (RED VLOOD CELLS) (RED VLOOD CELLS) [Concomitant]
  5. CEFMETAZOLE (CEFMETAZOLE) (CEFMETAZOLE) [Concomitant]
  6. ALBUMIN (ALBUMIN) (ALBUMIN) [Concomitant]
  7. AMINOACID GLUCOSE ELECTROLYTE (AMINO ACIDS NOS W/ ELECTROLYTES NOS/GLU [Concomitant]
  8. LASIX [Concomitant]
  9. PHYSIO 35 (PHYSIO) (PHYSIO) [Concomitant]
  10. ACETATE RINGER (ACETATED RINGER) (ACETATED RINGER) [Concomitant]

REACTIONS (3)
  - PLEURAL EFFUSION [None]
  - ATELECTASIS [None]
  - RESPIRATORY FAILURE [None]
